FAERS Safety Report 11644086 (Version 1)
Quarter: 2015Q4

REPORT INFORMATION
  Report Type: Spontaneous
  Country: US (occurrence: None)
  Receive Date: 20151019
  Receipt Date: 20151019
  Transmission Date: 20160304
  Serious: No
  Sender: FDA-Public Use
  Company Number: None

PATIENT
  Age: 51 Year
  Sex: Female

DRUGS (10)
  1. LORTAB [Concomitant]
     Active Substance: ACETAMINOPHEN\HYDROCODONE BITARTRATE
  2. AVONEX [Concomitant]
     Active Substance: INTERFERON BETA-1A
  3. TRAMADOL. [Concomitant]
     Active Substance: TRAMADOL
  4. CLONAZEPAM. [Concomitant]
     Active Substance: CLONAZEPAM
  5. TRAZODONE [Concomitant]
     Active Substance: TRAZODONE HYDROCHLORIDE
  6. BACLOFEN. [Concomitant]
     Active Substance: BACLOFEN
  7. PANTOPRAZOLE [Concomitant]
     Active Substance: PANTOPRAZOLE SODIUM
  8. PREMARIN [Concomitant]
     Active Substance: ESTROGENS, CONJUGATED
  9. TIZANIDINE. [Concomitant]
     Active Substance: TIZANIDINE
  10. TECFIDERA [Suspect]
     Active Substance: DIMETHYL FUMARATE
     Indication: MULTIPLE SCLEROSIS
     Route: 048
     Dates: start: 20140919, end: 20151016

REACTIONS (1)
  - White blood cell count decreased [None]

NARRATIVE: CASE EVENT DATE: 20151016
